FAERS Safety Report 8145255-5 (Version None)
Quarter: 2012Q1

REPORT INFORMATION
  Report Type: 
  Country: None (occurrence: None)
  Receive Date: 20120217
  Receipt Date: 20120213
  Transmission Date: 20120608
  Serious: Yes (Hospitalization, Other)
  Sender: FDA-Public Use
  Company Number: US-BAYER-2012-006406

PATIENT
  Age: 24 Year
  Sex: Female
  Weight: 59.864 kg

DRUGS (4)
  1. LUPRON - SLOW RELEASE [Concomitant]
     Dosage: UNK
     Dates: start: 20070101
  2. LEXAPRO [Concomitant]
     Dosage: 10 MG, QD
     Route: 048
  3. NEXIUM [Concomitant]
     Dosage: 40 MG, OM
     Route: 048
  4. YAZ [Suspect]
     Indication: CONTRACEPTION
     Dosage: UNK UNK, QD
     Route: 048
     Dates: start: 20071101, end: 20091201

REACTIONS (9)
  - GALLBLADDER POLYP [None]
  - CHOLECYSTECTOMY [None]
  - EMOTIONAL DISTRESS [None]
  - ABDOMINAL PAIN [None]
  - DEPRESSION [None]
  - FEAR [None]
  - EATING DISORDER [None]
  - NERVOUSNESS [None]
  - PAIN [None]
